FAERS Safety Report 22190839 (Version 1)
Quarter: 2023Q2

REPORT INFORMATION
  Report Type: Spontaneous
  Country: US (occurrence: US)
  Receive Date: 20230410
  Receipt Date: 20230410
  Transmission Date: 20230721
  Serious: Yes (Other)
  Sender: FDA-Public Use
  Company Number: US-SA-SAC20230405000504

PATIENT
  Age: 34 Year
  Sex: Female
  Weight: 97.52 kg

DRUGS (9)
  1. LUMIZYME [Suspect]
     Active Substance: ALGLUCOSIDASE ALFA
     Indication: Glycogen storage disease type II
     Dosage: 1800 MG, QOW
     Route: 042
     Dates: end: 20230331
  2. EPINEPHRINE [Concomitant]
     Active Substance: EPINEPHRINE
  3. MOTRIN IB [Concomitant]
     Active Substance: IBUPROFEN
  4. STERILE WATER [Concomitant]
     Active Substance: WATER
  5. ACETAMINOPHEN [Concomitant]
     Active Substance: ACETAMINOPHEN
  6. SODIUM CHLORIDE [Concomitant]
     Active Substance: SODIUM CHLORIDE
  7. LORATADINE [Concomitant]
     Active Substance: LORATADINE
  8. SODIUM CHLORIDE [Concomitant]
     Active Substance: SODIUM CHLORIDE
  9. PRENATAL PLUS [Concomitant]
     Active Substance: .ALPHA.-TOCOPHEROL ACETATE, DL-\.BETA.-CAROTENE\ASCORBIC ACID\CALCIUM CARBONATE\CHOLECALCIFEROL\CUPR

REACTIONS (3)
  - Vascular access site occlusion [Unknown]
  - Infusion site coldness [Unknown]
  - Cold sweat [Unknown]

NARRATIVE: CASE EVENT DATE: 20230331
